FAERS Safety Report 14772611 (Version 2)
Quarter: 2018Q4

REPORT INFORMATION
  Report Type: Spontaneous
  Country: FR (occurrence: FR)
  Receive Date: 20180418
  Receipt Date: 20181221
  Transmission Date: 20190204
  Serious: Yes (Other)
  Sender: FDA-Public Use
  Company Number: FR-SUN PHARMACEUTICAL INDUSTRIES LTD-2018RR-170184

PATIENT
  Age: 27 Year
  Sex: Male

DRUGS (4)
  1. PARACETAMOL [Suspect]
     Active Substance: ACETAMINOPHEN
     Indication: TINNITUS
     Dosage: 4 GRAM, PRN,(AS NECESSARY)
     Route: 048
     Dates: start: 2017, end: 20171117
  2. SPIFEN [Suspect]
     Active Substance: IBUPROFEN
     Indication: TINNITUS
     Dosage: 400 MILLIGRAM, QD
     Route: 048
     Dates: start: 2017, end: 20171117
  3. PAROXETINE (CHLORHYDRATE DE) ANHYDRE [Concomitant]
     Active Substance: PAROXETINE
     Indication: PRODUCT USED FOR UNKNOWN INDICATION
     Dosage: ()
     Route: 065
  4. LYSANXIA [Concomitant]
     Active Substance: PRAZEPAM
     Indication: PRODUCT USED FOR UNKNOWN INDICATION
     Dosage: ()
     Route: 065

REACTIONS (5)
  - Muscle spasms [Recovered/Resolved]
  - Headache [Recovering/Resolving]
  - Malaise [Recovered/Resolved]
  - Vision blurred [Recovering/Resolving]
  - Nausea [Recovered/Resolved]

NARRATIVE: CASE EVENT DATE: 20171114
